FAERS Safety Report 15370060 (Version 2)
Quarter: 2018Q4

REPORT INFORMATION
  Report Type: Spontaneous
  Country: JP (occurrence: JP)
  Receive Date: 20180911
  Receipt Date: 20181008
  Transmission Date: 20190204
  Serious: Yes (Other)
  Sender: FDA-Public Use
  Company Number: JP-BAYER-2018-165011

PATIENT
  Sex: Male

DRUGS (1)
  1. XOFIGO [Suspect]
     Active Substance: RADIUM RA-223 DICHLORIDE
     Route: 042

REACTIONS (4)
  - Cardiac failure [Recovered/Resolved]
  - Cerebral infarction [Recovered/Resolved]
  - Cholangitis [Recovered/Resolved]
  - Disease progression [Not Recovered/Not Resolved]
